FAERS Safety Report 9333574 (Version 1)
Quarter: 2013Q2

REPORT INFORMATION
  Report Type: Spontaneous
  Country: US (occurrence: US)
  Receive Date: 20130606
  Receipt Date: 20130606
  Transmission Date: 20140414
  Serious: No
  Sender: FDA-Public Use
  Company Number: US-AMGEN-USASP2012077411

PATIENT
  Age: 25 Year
  Sex: Female
  Weight: 72.56 kg

DRUGS (1)
  1. XGEVA [Suspect]
     Indication: PRODUCT USED FOR UNKNOWN INDICATION
     Dosage: 120 MG, Q4WK
     Dates: start: 20121130

REACTIONS (6)
  - Feeling abnormal [Unknown]
  - Hot flush [Unknown]
  - Flushing [Unknown]
  - Parosmia [Unknown]
  - Feeling hot [Unknown]
  - Dizziness [Unknown]
